FAERS Safety Report 7248466-6 (Version None)
Quarter: 2011Q1

REPORT INFORMATION
  Report Type: 
  Country: None (occurrence: None)
  Receive Date: 20110127
  Receipt Date: 20110124
  Transmission Date: 20110831
  Serious: Yes (Other)
  Sender: FDA-Public Use
  Company Number: DK-PFIZER INC-2011017000

PATIENT
  Age: 19 Year
  Sex: Female
  Weight: 58 kg

DRUGS (2)
  1. CHAMPIX [Suspect]
     Indication: SMOKING CESSATION THERAPY
     Dosage: 1TABLET 3X/DAY
     Route: 048
     Dates: start: 20101124, end: 20110105
  2. HARMONET [Interacting]
     Indication: CONTRACEPTION
     Route: 048

REACTIONS (4)
  - UNINTENDED PREGNANCY [None]
  - BLIGHTED OVUM [None]
  - DRUG INEFFECTIVE [None]
  - DRUG INTERACTION [None]
